FAERS Safety Report 6811241-8 (Version None)
Quarter: 2010Q2

REPORT INFORMATION
  Report Type: 
  Country: None (occurrence: None)
  Receive Date: 20100629
  Receipt Date: 20100629
  Transmission Date: 20101027
  Serious: No
  Sender: FDA-Public Use
  Company Number: None

PATIENT
  Age: 54 Year
  Sex: Male

DRUGS (1)
  1. DOXYCYCLINE [Suspect]
     Indication: HERPES SIMPLEX
     Dosage: 100 MG BID
     Dates: start: 20100608, end: 20100613

REACTIONS (1)
  - ERYTHEMA MULTIFORME [None]
